FAERS Safety Report 16889958 (Version 1)
Quarter: 2019Q4

REPORT INFORMATION
  Report Type: Spontaneous
  Country: US (occurrence: US)
  Receive Date: 20191004
  Receipt Date: 20191004
  Transmission Date: 20200122
  Serious: Yes (Disabling)
  Sender: FDA-Public Use
  Company Number: None

PATIENT
  Age: 51 Year
  Sex: Female
  Weight: 50.4 kg

DRUGS (4)
  1. CIPROFLOXACIN HCL [Suspect]
     Active Substance: CIPROFLOXACIN HYDROCHLORIDE
     Indication: URINARY TRACT INFECTION
     Dosage: ?          QUANTITY:1 TABLET(S);?
     Route: 048
     Dates: start: 20190929, end: 20190930
  2. THERATEARS NUTRITION [Concomitant]
  3. VITAMIN D50,000 UNITS WEEKLY [Concomitant]
  4. LEVTHYROXINE 75MCG DAILY [Concomitant]

REACTIONS (2)
  - Neuropathy peripheral [None]
  - Condition aggravated [None]

NARRATIVE: CASE EVENT DATE: 20190930
